FAERS Safety Report 15683087 (Version 1)
Quarter: 2018Q4

REPORT INFORMATION
  Report Type: Spontaneous
  Country: GB (occurrence: GB)
  Receive Date: 20181204
  Receipt Date: 20181204
  Transmission Date: 20190205
  Serious: Yes (Death)
  Sender: FDA-Public Use
  Company Number: GB-B.I. PHARMACEUTICALS,INC./RIDGEFIELD-2018-BI-058335

PATIENT
  Age: 14 Year
  Sex: Male

DRUGS (8)
  1. CATAPRESAN [Suspect]
     Active Substance: CLONIDINE
     Indication: DYSTONIA
     Dosage: 600 MCG (0.59 MCG/KG/HOUR)  ?PERCUTANEOUS ENDOSCOPIC GASTROSTOMY (PEG) OVER 24 HOURS
     Route: 058
  2. BACLOFEN. [Concomitant]
     Active Substance: BACLOFEN
     Indication: PRODUCT USED FOR UNKNOWN INDICATION
     Route: 065
  3. CATAPRESAN [Suspect]
     Active Substance: CLONIDINE
     Dosage: 750 UG/24 HOURS (0.744UG/KG/HOUR).
     Route: 058
  4. MIDAZOLAM [Concomitant]
     Active Substance: MIDAZOLAM HYDROCHLORIDE
     Dosage: 60 MG (59 UG/KG/HOUR)
     Route: 058
  5. FENTANYL. [Concomitant]
     Active Substance: FENTANYL
     Indication: PRODUCT USED FOR UNKNOWN INDICATION
     Dosage: PATCH
     Route: 065
  6. HYOSCINE [Concomitant]
     Active Substance: SCOPOLAMINE
     Indication: PRODUCT USED FOR UNKNOWN INDICATION
     Dosage: PATCH
     Route: 065
  7. MIDAZOLAM [Concomitant]
     Active Substance: MIDAZOLAM HYDROCHLORIDE
     Indication: LEUKODYSTROPHY
     Dosage: 119 UG/KG/HOUR), DOSE RANGE FOR TERMINAL SEIZURE CONTROL 50-300UG/KG/HOUR
     Route: 058
  8. TRIHEXYPHENIDYL [Concomitant]
     Active Substance: TRIHEXYPHENIDYL
     Indication: PRODUCT USED FOR UNKNOWN INDICATION
     Route: 065

REACTIONS (2)
  - General physical health deterioration [Fatal]
  - Pneumonia [Fatal]
